FAERS Safety Report 23670777 (Version 1)
Quarter: 2024Q1

REPORT INFORMATION
  Report Type: Spontaneous
  Country: US (occurrence: US)
  Receive Date: 20240326
  Receipt Date: 20240326
  Transmission Date: 20240410
  Serious: No
  Sender: FDA-Public Use
  Company Number: US-AMGEN-USASP2024058737

PATIENT

DRUGS (3)
  1. XGEVA [Suspect]
     Active Substance: DENOSUMAB
     Indication: Product used for unknown indication
     Dosage: UNK
     Route: 065
  2. IBRANCE [Concomitant]
     Active Substance: PALBOCICLIB
     Dosage: UNK
     Route: 065
     Dates: start: 202306
  3. IBRANCE [Concomitant]
     Active Substance: PALBOCICLIB
     Dosage: 75 MILLIGRAM, QD
     Route: 065

REACTIONS (4)
  - Pain in jaw [Unknown]
  - Headache [Unknown]
  - Alopecia [Unknown]
  - Full blood count decreased [Unknown]
